FAERS Safety Report 18467325 (Version 1)
Quarter: 2020Q4

REPORT INFORMATION
  Report Type: Spontaneous
  Country: US (occurrence: US)
  Receive Date: 20201104
  Receipt Date: 20201104
  Transmission Date: 20210114
  Serious: Yes (Death)
  Sender: FDA-Public Use
  Company Number: None

PATIENT
  Age: 56 Year
  Sex: Female
  Weight: 72.57 kg

DRUGS (1)
  1. REMDESIVIR. [Suspect]
     Active Substance: REMDESIVIR

REACTIONS (6)
  - Respiratory distress [None]
  - Subcutaneous emphysema [None]
  - Delirium [None]
  - Pneumothorax [None]
  - Agitation [None]
  - Blood pressure abnormal [None]

NARRATIVE: CASE EVENT DATE: 20201020
